FAERS Safety Report 10263481 (Version 1)
Quarter: 2014Q2

REPORT INFORMATION
  Report Type: Spontaneous
  Country: US (occurrence: US)
  Receive Date: 20140626
  Receipt Date: 20140626
  Transmission Date: 20141212
  Serious: Yes (Other)
  Sender: FDA-Public Use
  Company Number: GXBR2014US001510

PATIENT
  Age: 54 Year
  Sex: Male
  Weight: 86.17 kg

DRUGS (2)
  1. OMEPRAZOLE DELAYED RELEASE CAPSULES [Suspect]
     Indication: BARRETT^S OESOPHAGUS
     Dosage: 40 MG, QD
     Route: 048
     Dates: start: 201310
  2. BABY ASPIRIN [Concomitant]
     Dosage: 81 MG, UNK

REACTIONS (2)
  - Deafness [Not Recovered/Not Resolved]
  - Tinnitus [Not Recovered/Not Resolved]
